FAERS Safety Report 10385322 (Version 1)
Quarter: 2014Q3

REPORT INFORMATION
  Report Type: Spontaneous
  Country: FR (occurrence: FR)
  Receive Date: 20140814
  Receipt Date: 20140814
  Transmission Date: 20150326
  Serious: Yes (Life-Threatening, Hospitalization, Other)
  Sender: FDA-Public Use
  Company Number: FR-BRISTOL-MYERS SQUIBB COMPANY-21277736

PATIENT
  Age: 67 Year
  Sex: Female

DRUGS (4)
  1. PLAVIX [Suspect]
     Active Substance: CLOPIDOGREL BISULFATE
     Indication: ARRHYTHMIA
  2. HYDREA [Suspect]
     Active Substance: HYDROXYUREA
     Indication: POLYCYTHAEMIA VERA
     Dosage: 1998-MAR14?MAY14-12JUN14
     Dates: start: 1998
  3. PLAVIX [Suspect]
     Active Substance: CLOPIDOGREL BISULFATE
     Indication: ATRIAL FIBRILLATION
  4. COUMADIN [Suspect]
     Active Substance: WARFARIN SODIUM

REACTIONS (8)
  - Haematoma [Unknown]
  - Acute respiratory distress syndrome [Unknown]
  - Glomerulonephritis proliferative [Unknown]
  - Immune system disorder [Unknown]
  - Renal failure acute [Unknown]
  - Influenza [Unknown]
  - Infection [Unknown]
  - Skin ulcer [Recovering/Resolving]

NARRATIVE: CASE EVENT DATE: 201403
